FAERS Safety Report 9504474 (Version 1)
Quarter: 2013Q1

REPORT INFORMATION
  Report Type: Spontaneous
  Country: US (occurrence: None)
  Receive Date: 20130225
  Receipt Date: 20130225
  Transmission Date: 20140127
  Serious: Yes (Hospitalization)
  Sender: FDA-Public Use
  Company Number: 363451

PATIENT
  Age: 41 Year
  Sex: Male
  Weight: 70.7 kg

DRUGS (5)
  1. VICTOZA [Suspect]
     Indication: TYPE 2 DIABETES MELLITUS
     Route: 058
     Dates: start: 20120710, end: 20120928
  2. METFORMIN (METFORMIN) [Suspect]
  3. GLYBURIDE [Suspect]
  4. CRESTOR [Suspect]
  5. NPH INSULIN [Suspect]

REACTIONS (1)
  - Pancreatitis acute [None]
